FAERS Safety Report 4705459-8 (Version None)
Quarter: 2005Q3

REPORT INFORMATION
  Report Type: 
  Country: None (occurrence: None)
  Receive Date: 20050701
  Receipt Date: 20050523
  Transmission Date: 20060218
  Serious: Yes (Death, Disabling)
  Sender: FDA-Public Use
  Company Number: 200514633GDDC

PATIENT
  Age: 30 Year
  Sex: Female
  Weight: 35 kg

DRUGS (11)
  1. RIFADIN [Suspect]
     Indication: PULMONARY TUBERCULOSIS
     Route: 048
     Dates: start: 19990511, end: 19990602
  2. ISCOTIN [Suspect]
     Indication: PULMONARY TUBERCULOSIS
     Route: 048
     Dates: start: 19990511, end: 19990602
  3. PYRAMIDE [Suspect]
     Indication: PULMONARY TUBERCULOSIS
     Route: 048
     Dates: start: 19990518, end: 19990522
  4. EBUTOL [Concomitant]
     Indication: PULMONARY TUBERCULOSIS
     Route: 048
     Dates: start: 19990522, end: 19990602
  5. STREPTOMYCIN SULFATE [Concomitant]
     Indication: PULMONARY TUBERCULOSIS
     Route: 030
     Dates: start: 19990518, end: 19990602
  6. FIRSTCIN [Concomitant]
     Indication: PNEUMONIA BACTERIAL
     Route: 042
     Dates: start: 19990514, end: 19990517
  7. PRIMAXIN [Concomitant]
     Indication: PNEUMONIA BACTERIAL
     Route: 042
     Dates: start: 19990517, end: 19990531
  8. STRONG NEO-MINOPHAGEN C [Concomitant]
     Route: 042
     Dates: start: 19990519, end: 19990602
  9. AMICALIQ [Concomitant]
     Route: 041
     Dates: start: 19990514
  10. ACTIT [Concomitant]
     Route: 041
     Dates: start: 19990514
  11. DALACIN [Concomitant]
     Dates: start: 19990517

REACTIONS (7)
  - CACHEXIA [None]
  - GASTROINTESTINAL DISORDER [None]
  - HAEMATOCRIT DECREASED [None]
  - HAEMOGLOBIN DECREASED [None]
  - HEPATIC FUNCTION ABNORMAL [None]
  - MALNUTRITION [None]
  - PULMONARY TUBERCULOSIS [None]
